FAERS Safety Report 8276704-X (Version None)
Quarter: 2012Q2

REPORT INFORMATION
  Report Type: 
  Country: None (occurrence: None)
  Receive Date: 20120412
  Receipt Date: 20120412
  Transmission Date: 20120825
  Serious: Yes (Hospitalization)
  Sender: FDA-Public Use
  Company Number: None

PATIENT
  Age: 77 Year
  Sex: Female
  Weight: 72.5 kg

DRUGS (2)
  1. ENOXAPARIN [Concomitant]
     Route: 058
  2. HEPARIN [Suspect]

REACTIONS (1)
  - PLATELET COUNT DECREASED [None]
